FAERS Safety Report 5948646-3 (Version None)
Quarter: 2008Q4

REPORT INFORMATION
  Report Type: 
  Country: None (occurrence: None)
  Receive Date: 20081111
  Receipt Date: 20081105
  Transmission Date: 20090506
  Serious: Yes (Hospitalization)
  Sender: FDA-Public Use
  Company Number: US-ASTRAZENECA-2008UW24800

PATIENT
  Age: 25534 Day
  Sex: Female
  Weight: 38.1 kg

DRUGS (2)
  1. FASLODEX [Suspect]
     Indication: BREAST CANCER METASTATIC
     Route: 048
     Dates: start: 20070516
  2. BEVACIZUMAB [Suspect]
     Indication: BREAST CANCER METASTATIC
     Dates: start: 20070516

REACTIONS (1)
  - CONVULSION [None]
